FAERS Safety Report 5847448-6 (Version None)
Quarter: 2008Q3

REPORT INFORMATION
  Report Type: 
  Country: None (occurrence: None)
  Receive Date: 20080813
  Receipt Date: 20080731
  Transmission Date: 20090109
  Serious: No
  Sender: FDA-Public Use
  Company Number: 2008-181477-NL

PATIENT
  Age: 89 Year
  Sex: Female

DRUGS (4)
  1. MIRTAZAPINE [Suspect]
     Indication: DEPRESSION
     Dosage: 15 MG QD  ORAL
     Route: 048
     Dates: start: 20080326, end: 20080624
  2. WARFARIN SODIUM [Concomitant]
  3. ACETAMINOPHEN [Concomitant]
  4. PREDNISOLONE [Concomitant]

REACTIONS (2)
  - FALL [None]
  - SOMNAMBULISM [None]
